FAERS Safety Report 26143471 (Version 1)
Quarter: 2025Q4

REPORT INFORMATION
  Report Type: Report from Study
  Country: US (occurrence: US)
  Receive Date: 20251211
  Receipt Date: 20251211
  Transmission Date: 20260117
  Serious: Yes (Other)
  Sender: ESTEVE
  Company Number: US-Esteve Pharmaceuticals SA-2190350

PATIENT
  Age: 19 Year
  Sex: Female

DRUGS (25)
  1. LYSODREN [Suspect]
     Active Substance: MITOTANE
     Indication: Adrenocortical carcinoma
     Dates: start: 20250611
  2. LYSODREN [Suspect]
     Active Substance: MITOTANE
  3. DEXAMETHASONE [Concomitant]
     Active Substance: DEXAMETHASONE
  4. XARELTO [Concomitant]
     Active Substance: RIVAROXABAN
  5. VITAMIN D NOS [Concomitant]
     Active Substance: CHOLECALCIFEROL\ERGOCALCIFEROL
  6. kphos 500 [Concomitant]
  7. OLANZAPINE [Concomitant]
     Active Substance: OLANZAPINE
  8. HYDROCORTISONE [Concomitant]
     Active Substance: HYDROCORTISONE
  9. TRANEXAMIC ACID [Concomitant]
     Active Substance: TRANEXAMIC ACID
  10. AMINOCAPROIC ACID [Concomitant]
     Active Substance: AMINOCAPROIC ACID
  11. LORAZEPAM [Concomitant]
     Active Substance: LORAZEPAM
  12. mg-oxide [Concomitant]
  13. POTASSIUM CHLORIDE [Concomitant]
     Active Substance: POTASSIUM CHLORIDE
  14. ALPRAZOLAM [Concomitant]
     Active Substance: ALPRAZOLAM
  15. DIPHENHYDRAMINE [Concomitant]
     Active Substance: DIPHENHYDRAMINE
  16. bactrim 400 [Concomitant]
  17. CORTEF [Concomitant]
     Active Substance: HYDROCORTISONE
  18. SENNA [Concomitant]
     Active Substance: SENNOSIDES
  19. SCOPOLAMINE [Concomitant]
     Active Substance: SCOPOLAMINE
  20. GRANISETRON [Concomitant]
     Active Substance: GRANISETRON
  21. HYDROCORTISONE [Concomitant]
     Active Substance: HYDROCORTISONE
  22. FLUDROCORTISONE [Concomitant]
     Active Substance: FLUDROCORTISONE
  23. OMEPRAZOLE [Concomitant]
     Active Substance: OMEPRAZOLE
  24. sucralfalate [Concomitant]
  25. LYSODREN [Suspect]
     Active Substance: MITOTANE

REACTIONS (7)
  - Thrombosis [Not Recovered/Not Resolved]
  - Product dose omission issue [Not Recovered/Not Resolved]
  - Fatigue [Recovering/Resolving]
  - Vomiting [Recovering/Resolving]
  - Nausea [Recovering/Resolving]
  - Psychomotor skills impaired [Not Recovered/Not Resolved]
  - Pericardial effusion [Not Recovered/Not Resolved]
